FAERS Safety Report 24721589 (Version 1)
Quarter: 2024Q4

REPORT INFORMATION
  Report Type: Spontaneous
  Country: US (occurrence: US)
  Receive Date: 20241211
  Receipt Date: 20241211
  Transmission Date: 20250115
  Serious: No
  Sender: BRECKENRIDGE PHARMACEUTICAL, INC.
  Company Number: US-Breckenridge Pharmaceutical, Inc.-2166878

PATIENT
  Age: 85 Year
  Sex: Male
  Weight: 90.909 kg

DRUGS (13)
  1. RIVASTIGMINE TRANSDERMAL SYSTEM [Suspect]
     Active Substance: RIVASTIGMINE
     Indication: Dementia
  2. ATORVASTATIN CALCIUM [Concomitant]
     Active Substance: ATORVASTATIN CALCIUM
  3. VITAMINS [Concomitant]
     Active Substance: VITAMINS
  4. LATANOPROST [Concomitant]
     Active Substance: LATANOPROST
  5. FOSAMAX [Concomitant]
     Active Substance: ALENDRONATE SODIUM
  6. TRELEGY ELLIPTA [Concomitant]
     Active Substance: FLUTICASONE FUROATE\UMECLIDINIUM BROMIDE\VILANTEROL TRIFENATATE
  7. LEVALBUTEROL [Concomitant]
     Active Substance: LEVALBUTEROL
  8. PREDNISONE [Concomitant]
     Active Substance: PREDNISONE
  9. MIRABEGRON [Concomitant]
     Active Substance: MIRABEGRON
  10. DULOXETINE [Suspect]
     Active Substance: DULOXETINE
  11. OMEPRAZOLE [Concomitant]
     Active Substance: OMEPRAZOLE
  12. TAMSULOSIN HYDROCHLORIDE [Concomitant]
     Active Substance: TAMSULOSIN HYDROCHLORIDE
  13. FUROSEMIDE [Concomitant]
     Active Substance: FUROSEMIDE

REACTIONS (1)
  - Nightmare [Unknown]
